FAERS Safety Report 8325298-9 (Version None)
Quarter: 2012Q2

REPORT INFORMATION
  Report Type: 
  Country: None (occurrence: None)
  Receive Date: 20120501
  Receipt Date: 20120418
  Transmission Date: 20120825
  Serious: Yes (Hospitalization)
  Sender: FDA-Public Use
  Company Number: FR-VERTEX PHARMACEUTICALS INC.-000000000000000548

PATIENT
  Sex: Female
  Weight: 57.5 kg

DRUGS (7)
  1. COPEGUS [Concomitant]
     Indication: HEPATITIS C
     Route: 048
     Dates: start: 20120119, end: 20120126
  2. ALDACTONE [Concomitant]
     Indication: OEDEMA
     Dates: start: 20110827
  3. PEGASYS [Concomitant]
     Indication: HEPATITIS C
     Route: 058
     Dates: start: 20120119, end: 20120126
  4. ALDACTONE [Concomitant]
  5. INCIVO [Suspect]
     Indication: HEPATITIS C
     Dosage: DOSAGE FORM: TABLET
     Route: 048
     Dates: start: 20120119, end: 20120126
  6. PREVISCAN (FLUINDIONE) [Concomitant]
     Indication: THROMBOSIS
     Dosage: DOSAGE FORM: TABLET
     Dates: start: 20090101
  7. HUMALOG [Concomitant]
     Indication: DIABETES MELLITUS
     Dates: start: 20050101

REACTIONS (6)
  - ENCEPHALOPATHY [None]
  - OEDEMA [None]
  - DECREASED APPETITE [None]
  - ASTHENIA [None]
  - ORTHOSTATIC HYPOTENSION [None]
  - ASCITES [None]
